FAERS Safety Report 6634574-7 (Version None)
Quarter: 2010Q1

REPORT INFORMATION
  Report Type: 
  Country: None (occurrence: None)
  Receive Date: 20100312
  Receipt Date: 20100312
  Transmission Date: 20100710
  Serious: Yes (Other)
  Sender: FDA-Public Use
  Company Number: None

PATIENT
  Age: 60 Year
  Sex: Female

DRUGS (1)
  1. TRICOR [Suspect]
     Indication: BLOOD CHOLESTEROL INCREASED
     Dosage: 145 MG AT ONE PILL PER DAY ORALLY
     Route: 048
     Dates: start: 20100224, end: 20100226

REACTIONS (2)
  - RASH [None]
  - SKIN REACTION [None]
